FAERS Safety Report 19994385 (Version 2)
Quarter: 2022Q1

REPORT INFORMATION
  Report Type: Report from Study
  Country: US (occurrence: US)
  Receive Date: 20211025
  Receipt Date: 20220221
  Transmission Date: 20220423
  Serious: Yes (Other)
  Sender: FDA-Public Use
  Company Number: US-SANOFI-00816619

PATIENT
  Age: 64 Year
  Sex: Female

DRUGS (4)
  1. DUPILUMAB [Suspect]
     Active Substance: DUPILUMAB
     Indication: Asthma
     Dosage: 600 MG, 1X
     Route: 058
     Dates: start: 20210813, end: 20210813
  2. DUPILUMAB [Suspect]
     Active Substance: DUPILUMAB
     Indication: Dermatitis atopic
     Dosage: 300 MG, QOW
     Route: 058
     Dates: start: 20211008
  3. VENTOLIN [Concomitant]
     Active Substance: ALBUTEROL SULFATE
     Indication: Asthma
     Dosage: UNK
  4. SYMBICORT [Concomitant]
     Active Substance: BUDESONIDE\FORMOTEROL FUMARATE DIHYDRATE
     Indication: Asthma
     Dosage: UNK

REACTIONS (17)
  - Myocardial infarction [Unknown]
  - Gait disturbance [Unknown]
  - Electrocardiogram abnormal [Unknown]
  - Headache [Unknown]
  - Pain in jaw [Unknown]
  - Nausea [Unknown]
  - Asthma [Recovering/Resolving]
  - Throat clearing [Unknown]
  - Fall [Unknown]
  - COVID-19 [Unknown]
  - Pyrexia [Unknown]
  - Headache [Unknown]
  - Pain [Unknown]
  - Tenderness [Unknown]
  - Visual impairment [Unknown]
  - Electrocardiogram abnormal [Unknown]
  - Product use issue [Unknown]

NARRATIVE: CASE EVENT DATE: 20210813
